FAERS Safety Report 6207066-7 (Version None)
Quarter: 2009Q2

REPORT INFORMATION
  Report Type: 
  Country: None (occurrence: None)
  Receive Date: 20090528
  Receipt Date: 20090518
  Transmission Date: 20091009
  Serious: Yes (Hospitalization)
  Sender: FDA-Public Use
  Company Number: MA-WATSON-2009-03577

PATIENT
  Age: 40 Year
  Sex: Female

DRUGS (3)
  1. CHLOROQUINE (WATSON LABORATORIES) [Suspect]
     Indication: SYSTEMIC LUPUS ERYTHEMATOSUS
     Dosage: 200 MG, DAILY
     Dates: start: 20090101
  2. CHLOROQUINE (WATSON LABORATORIES) [Suspect]
     Dosage: UNK MG, DAILY
     Dates: start: 20040101
  3. CHLOROQUINE (WATSON LABORATORIES) [Suspect]
     Dosage: 200 MG, DAILY
     Dates: start: 20020101

REACTIONS (1)
  - ACUTE FEBRILE NEUTROPHILIC DERMATOSIS [None]
